FAERS Safety Report 4750469-8 (Version None)
Quarter: 2005Q3

REPORT INFORMATION
  Report Type: 
  Country: None (occurrence: None)
  Receive Date: 20050823
  Receipt Date: 20050822
  Transmission Date: 20060218
  Serious: Yes (Hospitalization)
  Sender: FDA-Public Use
  Company Number: US-GLAXOSMITHKLINE-A0571219A

PATIENT
  Sex: Female

DRUGS (14)
  1. TAGAMET [Suspect]
     Indication: GASTROOESOPHAGEAL REFLUX DISEASE
     Dosage: 400MG TWICE PER DAY
     Route: 048
     Dates: end: 20050722
  2. ZANTAC [Suspect]
     Indication: GASTROOESOPHAGEAL REFLUX DISEASE
     Dosage: 150MG TWICE PER DAY
     Route: 048
     Dates: start: 20050811, end: 20050811
  3. CIMETIDINE [Suspect]
     Indication: GASTROOESOPHAGEAL REFLUX DISEASE
  4. NEXIUM [Suspect]
     Indication: GASTROOESOPHAGEAL REFLUX DISEASE
  5. PEPCID [Suspect]
     Indication: GASTROOESOPHAGEAL REFLUX DISEASE
  6. PRILOSEC [Suspect]
     Indication: GASTROOESOPHAGEAL REFLUX DISEASE
  7. OMEPRAZOLE [Suspect]
     Indication: GASTROOESOPHAGEAL REFLUX DISEASE
  8. LICORICE [Suspect]
     Indication: GASTROOESOPHAGEAL REFLUX DISEASE
  9. PHENAZOPYRIDINE HCL TAB [Concomitant]
  10. MACROBID [Concomitant]
  11. PRO-BANTHINE [Concomitant]
  12. CANASA [Concomitant]
  13. VALIUM [Concomitant]
  14. CELEXA [Concomitant]

REACTIONS (7)
  - BLADDER SPASM [None]
  - DIZZINESS [None]
  - DRUG INEFFECTIVE [None]
  - EATING DISORDER [None]
  - MALAISE [None]
  - NAUSEA [None]
  - SUICIDAL IDEATION [None]
